FAERS Safety Report 14862158 (Version 2)
Quarter: 2018Q2

REPORT INFORMATION
  Report Type: Spontaneous
  Country: DE (occurrence: DE)
  Receive Date: 20180508
  Receipt Date: 20180619
  Transmission Date: 20180711
  Serious: Yes (Hospitalization, Disabling, Other)
  Sender: FDA-Public Use
  Company Number: DE-SA-2018SA120299

PATIENT
  Sex: Female

DRUGS (8)
  1. LEMTRADA [Suspect]
     Active Substance: ALEMTUZUMAB
     Indication: MULTIPLE SCLEROSIS
     Dosage: 12 MG,QD
     Route: 041
     Dates: start: 20171012, end: 20171014
  2. CORTISONE [Concomitant]
     Active Substance: CORTISONE\HYDROCORTISONE
     Indication: AUTOINFLAMMATORY DISEASE
     Dosage: 500 MG
     Route: 041
     Dates: start: 20180119, end: 20180131
  3. TRAMADOL. [Concomitant]
     Active Substance: TRAMADOL
     Dosage: 100 MG, BID
     Route: 048
  4. FOLIO FORTE [Concomitant]
     Active Substance: FOLIC ACID\VITAMINS
     Dosage: UNK UNK, QD
  5. FENISTIL [Concomitant]
     Active Substance: DIMETHINDENE
     Dosage: TABLETS
  6. PREDNISOLONE. [Concomitant]
     Active Substance: PREDNISOLONE
     Dosage: 20 MG, QD
  7. L-THYROXINE [LEVOTHYROXINE] [Concomitant]
     Dosage: 75 UG, QD
  8. PANTOZOL P20 [Concomitant]
     Dosage: 20 MG, QD

REACTIONS (42)
  - Pyrexia [Unknown]
  - Fatigue [Unknown]
  - Asthenia [Unknown]
  - Anamnestic reaction [Unknown]
  - Musculoskeletal chest pain [Unknown]
  - Blood parathyroid hormone decreased [Unknown]
  - Immobile [Unknown]
  - Oropharyngeal pain [Unknown]
  - Viral infection [Unknown]
  - Pain in extremity [Not Recovered/Not Resolved]
  - Faecal calprotectin abnormal [Unknown]
  - Autoimmune thyroiditis [Unknown]
  - Rash [Unknown]
  - Eczema [Unknown]
  - Night sweats [Unknown]
  - Still^s disease [Recovering/Resolving]
  - Adverse event [Unknown]
  - Rash pruritic [Recovering/Resolving]
  - Dysphagia [Unknown]
  - Pharyngitis [Unknown]
  - Leukocytosis [Unknown]
  - Serum amyloid A protein increased [Unknown]
  - Macule [Unknown]
  - Antibody test positive [Not Recovered/Not Resolved]
  - Basedow^s disease [Unknown]
  - Off label use [Unknown]
  - C-reactive protein increased [Unknown]
  - Musculoskeletal stiffness [Unknown]
  - Anti-thyroid antibody positive [Unknown]
  - Arthralgia [Recovering/Resolving]
  - Inflammation [Unknown]
  - Cold agglutinins positive [Unknown]
  - Blood immunoglobulin G increased [Unknown]
  - Blood 1,25-dihydroxycholecalciferol increased [Unknown]
  - Pleural effusion [Unknown]
  - Pleurisy [Unknown]
  - Nuclear magnetic resonance imaging abnormal [Unknown]
  - Cryopyrin associated periodic syndrome [Unknown]
  - Urticaria [Unknown]
  - Influenza like illness [Unknown]
  - Myalgia [Unknown]
  - Unevaluable event [Unknown]

NARRATIVE: CASE EVENT DATE: 20171009
